FAERS Safety Report 6870939-6 (Version None)
Quarter: 2010Q3

REPORT INFORMATION
  Report Type: 
  Country: None (occurrence: None)
  Receive Date: 20100723
  Receipt Date: 20100722
  Transmission Date: 20110219
  Serious: Yes (Hospitalization, Other)
  Sender: FDA-Public Use
  Company Number: IT-BRISTOL-MYERS SQUIBB COMPANY-14685143

PATIENT
  Age: 67 Year
  Sex: Female

DRUGS (2)
  1. COUMADIN [Suspect]
     Indication: PROPHYLAXIS
     Dosage: DOSE REDUCED ON 14MAY09; 1DF= 1 POSOLOGIC UNIT; DRUG SUSPENDED
     Route: 048
     Dates: start: 20070101, end: 20100506
  2. SOTALEX TABS 80 MG [Concomitant]
     Indication: ARRHYTHMIA
     Dosage: 2DF= 2 POSOLOGIC UNIT
     Route: 048
     Dates: start: 20080101, end: 20090514

REACTIONS (7)
  - ANAEMIA [None]
  - EROSIVE OESOPHAGITIS [None]
  - GASTRIC ULCER [None]
  - GASTROINTESTINAL HAEMORRHAGE [None]
  - GINGIVAL BLEEDING [None]
  - INTERNATIONAL NORMALISED RATIO DECREASED [None]
  - INTERNATIONAL NORMALISED RATIO INCREASED [None]
